FAERS Safety Report 17760725 (Version 9)
Quarter: 2020Q4

REPORT INFORMATION
  Report Type: Report from Study
  Country: US (occurrence: US)
  Receive Date: 20200508
  Receipt Date: 20201207
  Transmission Date: 20210113
  Serious: No
  Sender: FDA-Public Use
  Company Number: NVSC2020US125520

PATIENT
  Sex: Female

DRUGS (2)
  1. COSENTYX [Suspect]
     Active Substance: SECUKINUMAB
     Indication: PSORIASIS
     Dosage: UNK
     Route: 058
  2. COSENTYX [Suspect]
     Active Substance: SECUKINUMAB
     Indication: PSORIASIS

REACTIONS (7)
  - Respiratory symptom [Unknown]
  - Dysphonia [Unknown]
  - Rhinorrhoea [Unknown]
  - Injection site haemorrhage [Unknown]
  - Pain in extremity [Unknown]
  - Enthesopathy [Not Recovered/Not Resolved]
  - Drug ineffective [Unknown]
